FAERS Safety Report 8175219-7 (Version None)
Quarter: 2012Q1

REPORT INFORMATION
  Report Type: 
  Country: None (occurrence: None)
  Receive Date: 20120229
  Receipt Date: 20110726
  Transmission Date: 20120608
  Serious: No
  Sender: FDA-Public Use
  Company Number: US-MYLANLABS-2011MA010050

PATIENT
  Sex: Male

DRUGS (3)
  1. DIGOXIN [Suspect]
     Route: 048
     Dates: start: 19820101
  2. DIGOXIN [Suspect]
     Route: 048
     Dates: start: 20050101
  3. DIGOXIN [Suspect]
     Route: 048
     Dates: start: 20050101

REACTIONS (3)
  - TOOTH FRACTURE [None]
  - DIZZINESS [None]
  - SYNCOPE [None]
